FAERS Safety Report 6673613-4 (Version None)
Quarter: 2010Q1

REPORT INFORMATION
  Report Type: 
  Country: None (occurrence: None)
  Receive Date: 20100329
  Receipt Date: 20091005
  Transmission Date: 20100710
  Serious: Yes (Other)
  Sender: FDA-Public Use
  Company Number: 2009281688

PATIENT
  Sex: Female

DRUGS (1)
  1. GEODON [Suspect]
     Indication: BIPOLAR DISORDER
     Dosage: 120 MG, ORAL
     Route: 048

REACTIONS (3)
  - DRUG ADMINISTRATION ERROR [None]
  - DYSPNOEA [None]
  - SWOLLEN TONGUE [None]
